FAERS Safety Report 19495850 (Version 7)
Quarter: 2022Q3

REPORT INFORMATION
  Report Type: Other
  Country: US (occurrence: None)
  Receive Date: 20210706
  Receipt Date: 20220921
  Transmission Date: 20221027
  Serious: Yes (Hospitalization)
  Sender: FDA-Public Use
  Company Number: US-ROCHE-2861065

PATIENT
  Age: 65 Year
  Sex: Female
  Weight: 99.426 kg

DRUGS (13)
  1. OCREVUS [Suspect]
     Active Substance: OCRELIZUMAB
     Indication: Primary progressive multiple sclerosis
     Route: 041
     Dates: start: 20191101
  2. OCREVUS [Suspect]
     Active Substance: OCRELIZUMAB
     Dosage: 10/FEB/2020
     Route: 042
  3. LYRICA [Concomitant]
     Active Substance: PREGABALIN
  4. PANTOPRAZOLE [Concomitant]
     Active Substance: PANTOPRAZOLE
  5. DULOXETINE [Concomitant]
     Active Substance: DULOXETINE
  6. OMEGA 3 [Concomitant]
     Active Substance: CAPSAICIN
  7. JANUVIA [Concomitant]
     Active Substance: SITAGLIPTIN PHOSPHATE
  8. METOPROLOL [Concomitant]
     Active Substance: METOPROLOL
  9. ATORVASTATIN [Concomitant]
     Active Substance: ATORVASTATIN
  10. TRAZODONE [Concomitant]
     Active Substance: TRAZODONE HYDROCHLORIDE
  11. HYDROCODONE [Concomitant]
     Active Substance: HYDROCODONE
  12. ALEVE [Concomitant]
     Active Substance: NAPROXEN SODIUM
  13. TYLENOL [Concomitant]
     Active Substance: ACETAMINOPHEN

REACTIONS (10)
  - Urinary tract infection [Recovered/Resolved]
  - Nephrolithiasis [Recovered/Resolved]
  - Decubitus ulcer [Recovered/Resolved]
  - Fatigue [Not Recovered/Not Resolved]
  - Hypersomnia [Not Recovered/Not Resolved]
  - Hallucination [Recovered/Resolved with Sequelae]
  - Delusion [Recovered/Resolved with Sequelae]
  - Pyrexia [Unknown]
  - Hypokinesia [Not Recovered/Not Resolved]
  - Intestinal obstruction [Recovered/Resolved]

NARRATIVE: CASE EVENT DATE: 20201101
